FAERS Safety Report 21215785 (Version 1)
Quarter: 2022Q3

REPORT INFORMATION
  Report Type: Spontaneous
  Country: EC (occurrence: EC)
  Receive Date: 20220816
  Receipt Date: 20220816
  Transmission Date: 20221026
  Serious: Yes (Other)
  Sender: FDA-Public Use
  Company Number: EC-NOVARTISPH-NVSC2022EC184599

PATIENT
  Age: 5 Year
  Sex: Male

DRUGS (1)
  1. CEFADROXIL [Suspect]
     Active Substance: CEFADROXIL
     Indication: Product used for unknown indication
     Dosage: 250 MG 4CC, BID
     Route: 065

REACTIONS (3)
  - Respiratory disorder [Unknown]
  - Ocular discomfort [Unknown]
  - Chest pain [Unknown]
